FAERS Safety Report 5041395-8 (Version None)
Quarter: 2006Q2

REPORT INFORMATION
  Report Type: 
  Country: None (occurrence: None)
  Receive Date: 20060627
  Receipt Date: 20060615
  Transmission Date: 20061013
  Serious: Yes (Life-Threatening, Hospitalization)
  Sender: FDA-Public Use
  Company Number: 224672

PATIENT
  Age: 61 Year
  Sex: Female
  Weight: 93.0327 kg

DRUGS (2)
  1. RAPTIVA [Suspect]
     Indication: DRUG USE FOR UNKNOWN INDICATION
     Dosage: 1 MG 1/WEEK SUBCUTANEOUS
     Route: 058
     Dates: start: 20040426
  2. SYNTHROID [Concomitant]

REACTIONS (1)
  - PAPILLARY THYROID CANCER [None]
